FAERS Safety Report 26181902 (Version 1)
Quarter: 2025Q4

REPORT INFORMATION
  Report Type: Spontaneous
  Country: US (occurrence: US)
  Receive Date: 20251221
  Receipt Date: 20251221
  Transmission Date: 20260118
  Serious: No
  Sender: ALEXION PHARMACEUTICALS
  Company Number: US-ASTRAZENECA-202512NAM014033US

PATIENT

DRUGS (1)
  1. ULTOMIRIS [Suspect]
     Active Substance: RAVULIZUMAB-CWVZ
     Indication: Myasthenia gravis
     Dosage: UNK
     Route: 065

REACTIONS (7)
  - Migraine [Unknown]
  - Rosacea [Unknown]
  - Muscle spasms [Unknown]
  - Muscle twitching [Unknown]
  - Weight increased [Unknown]
  - Speech disorder [Unknown]
  - Gait disturbance [Unknown]
